FAERS Safety Report 4500114-1 (Version None)
Quarter: 2004Q4

REPORT INFORMATION
  Report Type: 
  Country: None (occurrence: None)
  Receive Date: 20041112
  Receipt Date: 20041103
  Transmission Date: 20050328
  Serious: Yes (Other)
  Sender: FDA-Public Use
  Company Number: DK-GLAXOSMITHKLINE-B0350861A

PATIENT
  Age: 61 Year
  Sex: Male

DRUGS (1)
  1. MALARONE [Suspect]
     Indication: PROPHYLAXIS
     Dosage: 1TAB PER DAY
     Dates: start: 20030923, end: 20030929

REACTIONS (2)
  - ATRIAL FIBRILLATION [None]
  - MIGRAINE [None]
